FAERS Safety Report 8603776-2 (Version None)
Quarter: 2012Q3

REPORT INFORMATION
  Report Type: 
  Country: None (occurrence: None)
  Receive Date: 20120817
  Receipt Date: 20120810
  Transmission Date: 20120928
  Serious: Yes (Hospitalization, Other)
  Sender: FDA-Public Use
  Company Number: US-ABBOTT-12P-163-0967907-00

PATIENT
  Sex: Female
  Weight: 52.21 kg

DRUGS (1)
  1. HUMIRA [Suspect]
     Indication: CROHN'S DISEASE
     Dates: start: 20110101

REACTIONS (7)
  - ABDOMINAL PAIN [None]
  - SMALL INTESTINE ULCER [None]
  - TRANSFUSION [None]
  - HOSPITALISATION [None]
  - MALNUTRITION [None]
  - HYPOTENSION [None]
  - DRUG DOSE OMISSION [None]
